FAERS Safety Report 10204081 (Version 2)
Quarter: 2014Q2

REPORT INFORMATION
  Report Type: Spontaneous
  Country: DE (occurrence: DE)
  Receive Date: 20140529
  Receipt Date: 20140628
  Transmission Date: 20141212
  Serious: No
  Sender: FDA-Public Use
  Company Number: DE-AMGEN-DEUSP2014038449

PATIENT
  Sex: Male

DRUGS (1)
  1. XGEVA [Suspect]
     Indication: PRODUCT USED FOR UNKNOWN INDICATION
     Dosage: 120 MG, UNK
     Route: 065

REACTIONS (2)
  - Device failure [Unknown]
  - Device breakage [Unknown]
